FAERS Safety Report 9925379 (Version 3)
Quarter: 2014Q1

REPORT INFORMATION
  Report Type: Report from Study
  Country: ES (occurrence: ES)
  Receive Date: 20140226
  Receipt Date: 20140318
  Transmission Date: 20141002
  Serious: Yes (Life-Threatening, Hospitalization)
  Sender: FDA-Public Use
  Company Number: ES-CELGENEUS-144-21880-14013660

PATIENT
  Age: 59 Year
  Sex: Female
  Weight: 60 kg

DRUGS (8)
  1. REVLIMID [Suspect]
     Indication: PLASMA CELL MYELOMA
     Dosage: 25 MILLIGRAM
     Route: 048
     Dates: start: 20131125, end: 20140122
  2. VELCADE [Suspect]
     Indication: PLASMA CELL MYELOMA
     Route: 058
     Dates: start: 20131125, end: 20140103
  3. DEXAMETHASONE [Suspect]
     Indication: PLASMA CELL MYELOMA
     Route: 048
     Dates: start: 20131125, end: 20140103
  4. LEVOFLOXACIN [Concomitant]
     Indication: INFLUENZA
     Dosage: 500 MILLIGRAM
     Route: 048
     Dates: start: 20131230
  5. ALLOPURINOL [Concomitant]
     Indication: PRODUCT USED FOR UNKNOWN INDICATION
     Route: 065
  6. ACICLOVIR [Concomitant]
     Indication: INFECTION PROPHYLAXIS
     Dosage: 800 MILLIGRAM
     Route: 048
     Dates: start: 20131125
  7. ENOXAPARIN [Concomitant]
     Indication: PRODUCT USED FOR UNKNOWN INDICATION
     Route: 065
  8. OMEPRAZOLE [Concomitant]
     Indication: PRODUCT USED FOR UNKNOWN INDICATION
     Route: 065

REACTIONS (2)
  - Drug reaction with eosinophilia and systemic symptoms [Recovered/Resolved]
  - Sepsis [Recovered/Resolved]
